FAERS Safety Report 8123197-9 (Version None)
Quarter: 2012Q1

REPORT INFORMATION
  Report Type: 
  Country: None (occurrence: None)
  Receive Date: 20120208
  Receipt Date: 20120126
  Transmission Date: 20120608
  Serious: Yes (Other)
  Sender: FDA-Public Use
  Company Number: DE-MYLANLABS-2012S1001855

PATIENT
  Age: 33 Year
  Sex: Female
  Weight: 61 kg

DRUGS (4)
  1. METHOTREXATE [Suspect]
     Indication: CROHN'S DISEASE
     Dosage: 15 [MG/WK ]
     Route: 058
     Dates: start: 20100101, end: 20100827
  2. PREDNISOLONE [Concomitant]
     Indication: CROHN'S DISEASE
     Dosage: 5 [MG/D ]/ THERAPY PROBABLY ONGOING
     Route: 048
  3. FOLIC ACID [Concomitant]
     Indication: PROPHYLAXIS OF NEURAL TUBE DEFECT
     Dosage: 0.8 [MG/D ]/ THERAPY PROBABLY ONGOING
     Route: 048
     Dates: start: 20100901, end: 20100903
  4. SALOFALK /00747601/ [Concomitant]
     Indication: CROHN'S DISEASE
     Route: 048

REACTIONS (3)
  - MATERNAL EXPOSURE DURING PREGNANCY [None]
  - HAEMORRHAGE IN PREGNANCY [None]
  - ABORTION MISSED [None]
